FAERS Safety Report 17755961 (Version 1)
Quarter: 2020Q2

REPORT INFORMATION
  Report Type: Spontaneous
  Country: GB (occurrence: GB)
  Receive Date: 20200507
  Receipt Date: 20200507
  Transmission Date: 20200714
  Serious: Yes (Disabling)
  Sender: FDA-Public Use
  Company Number: GB-MICRO LABS LIMITED-ML2020-01496

PATIENT
  Age: 85 Year
  Sex: Male
  Weight: 69.5 kg

DRUGS (18)
  1. CLINDAMYCIN. [Suspect]
     Active Substance: CLINDAMYCIN
     Indication: PERIPHERAL ISCHAEMIA
     Route: 048
  2. RAMIPRIL. [Concomitant]
     Active Substance: RAMIPRIL
     Dates: start: 20200212
  3. WARFARIN [Concomitant]
     Active Substance: WARFARIN
     Dosage: MDU, AS DIRECTED
     Dates: start: 20200211
  4. TAMSULOSIN [Concomitant]
     Active Substance: TAMSULOSIN
     Dates: start: 20200401
  5. CO-AMOXICLAV [Concomitant]
     Active Substance: AMOXICILLIN\CLAVULANATE POTASSIUM
     Dosage: 500MG/125MG
     Dates: start: 20200129
  6. COCODAMOL [Concomitant]
     Active Substance: ACETAMINOPHEN\CODEINE PHOSPHATE
     Dosage: 30MG/500MG, 1-2, UP TO FOUR TIMES DAILY
     Dates: start: 20200326
  7. SERETIDE [Concomitant]
     Active Substance: FLUTICASONE PROPIONATE\SALMETEROL XINAFOATE
     Dosage: PUFFS
     Dates: start: 20200401
  8. METFORMIN [Concomitant]
     Active Substance: METFORMIN HYDROCHLORIDE
     Dosage: IN MORNING, PATIENT PREFERENCE
     Dates: start: 20200401
  9. LANSOPRAZOLE. [Concomitant]
     Active Substance: LANSOPRAZOLE
     Dosage: IN MORNING
     Dates: start: 20200401
  10. FINASTERIDE. [Concomitant]
     Active Substance: FINASTERIDE
     Dosage: IN MORNING
     Dates: start: 20200401
  11. APIXABAN [Concomitant]
     Active Substance: APIXABAN
     Dates: start: 20200306
  12. PREDNISOLONE. [Concomitant]
     Active Substance: PREDNISOLONE
     Dosage: IN MORNING
     Dates: start: 20200401
  13. NIFEDIPINE. [Concomitant]
     Active Substance: NIFEDIPINE
     Dates: start: 20200401
  14. BUMETANIDE. [Concomitant]
     Active Substance: BUMETANIDE
     Dates: start: 20200131
  15. FOLIC ACID. [Concomitant]
     Active Substance: FOLIC ACID
     Dosage: IN MORNING
     Dates: start: 20200401
  16. PREDNISOLONE. [Concomitant]
     Active Substance: PREDNISOLONE
     Dosage: IN MORNING
     Dates: start: 20200401
  17. FUROSEMIDE. [Concomitant]
     Active Substance: FUROSEMIDE
     Dosage: IN MORNING
     Dates: start: 20200317, end: 20200326
  18. BUMETANIDE. [Concomitant]
     Active Substance: BUMETANIDE
     Dosage: IN MORNING
     Dates: start: 20200401

REACTIONS (2)
  - Pain in extremity [Recovered/Resolved]
  - Myalgia [Recovered/Resolved]

NARRATIVE: CASE EVENT DATE: 20200411
